FAERS Safety Report 10757502 (Version 1)
Quarter: 2015Q1

REPORT INFORMATION
  Report Type: Spontaneous
  Country: US (occurrence: None)
  Receive Date: 20150202
  Receipt Date: 20150202
  Transmission Date: 20150721
  Serious: Yes (Life-Threatening, Hospitalization)
  Sender: FDA-Public Use
  Company Number: None

PATIENT
  Age: 78 Year
  Sex: Male
  Weight: 113.4 kg

DRUGS (1)
  1. BELVIQ [Suspect]
     Active Substance: LORCASERIN HYDROCHLORIDE
     Indication: WEIGHT CONTROL
     Dosage: 2 PILLS
     Route: 048
     Dates: start: 20141030, end: 20141215

REACTIONS (4)
  - Blood potassium decreased [None]
  - Ventricular tachycardia [None]
  - Myocardial infarction [None]
  - Cardiac arrest [None]

NARRATIVE: CASE EVENT DATE: 20141229
